FAERS Safety Report 19004841 (Version 1)
Quarter: 2021Q1

REPORT INFORMATION
  Report Type: Spontaneous
  Country: IE (occurrence: IE)
  Receive Date: 20210313
  Receipt Date: 20210313
  Transmission Date: 20210420
  Serious: Yes (Life-Threatening, Other)
  Sender: FDA-Public Use
  Company Number: IE-JNJFOC-20190721660

PATIENT
  Age: 69 Year
  Sex: Female

DRUGS (7)
  1. IMODIUM [Suspect]
     Active Substance: LOPERAMIDE HYDROCHLORIDE
     Indication: GASTROINTESTINAL STOMA COMPLICATION
     Dosage: DURATION OF USE; AT LEAST 5 WEEKS AS IN?PATIENT, PROBABLY ADMITTED ON THIS TREATMENT
     Route: 048
     Dates: end: 20190611
  2. CODEINE (G) [Concomitant]
     Active Substance: CODEINE
     Indication: GASTROINTESTINAL STOMA COMPLICATION
     Route: 065
     Dates: start: 20190523
  3. CLARITHROMYCIN (GENERIC) [Interacting]
     Active Substance: CLARITHROMYCIN
     Indication: PNEUMONIA
     Route: 048
     Dates: start: 20190605, end: 20190611
  4. CODEINE (G) [Concomitant]
     Active Substance: CODEINE
     Route: 065
     Dates: start: 20190520
  5. KLACID IV [Suspect]
     Active Substance: CLARITHROMYCIN
     Route: 042
     Dates: start: 20190601, end: 20190605
  6. LOPERAMIDE [Suspect]
     Active Substance: LOPERAMIDE
     Indication: GASTROINTESTINAL STOMA COMPLICATION
     Route: 048
     Dates: end: 20190611
  7. CODEINE (G) [Concomitant]
     Active Substance: CODEINE
     Route: 065

REACTIONS (5)
  - Cardio-respiratory arrest [Recovered/Resolved]
  - Torsade de pointes [Recovered/Resolved]
  - Ventricular fibrillation [Recovered/Resolved]
  - Hypertension [Unknown]
  - Drug interaction [Recovered/Resolved]

NARRATIVE: CASE EVENT DATE: 20190611
